FAERS Safety Report 15321737 (Version 1)
Quarter: 2018Q3

REPORT INFORMATION
  Report Type: Spontaneous
  Country: US (occurrence: US)
  Receive Date: 20180821
  Receipt Date: 20180821
  Transmission Date: 20181010
  Serious: Yes (Disabling)
  Sender: FDA-Public Use
  Company Number: None

PATIENT
  Age: 65 Year
  Sex: Female
  Weight: 83.7 kg

DRUGS (17)
  1. VYVANSE [Concomitant]
     Active Substance: LISDEXAMFETAMINE DIMESYLATE
  2. PRAVASTATIN. [Concomitant]
     Active Substance: PRAVASTATIN
  3. PROLIA [Suspect]
     Active Substance: DENOSUMAB
     Indication: OSTEOPOROSIS
     Dosage: QUANTITY:1 INJECTION(S);OTHER FREQUENCY:EVERY 6 MONTHS;?
     Route: 058
     Dates: start: 20180618, end: 20180619
  4. CLONAZEPAM. [Concomitant]
     Active Substance: CLONAZEPAM
  5. FREESTYLE LIBRE [Concomitant]
  6. NOVOLOG [Concomitant]
     Active Substance: INSULIN ASPART
  7. VITAMIN D3 [Concomitant]
     Active Substance: CHOLECALCIFEROL
  8. AMLODIPINE BESYLATE. [Concomitant]
     Active Substance: AMLODIPINE BESYLATE
  9. FLUTICASONE. [Concomitant]
     Active Substance: FLUTICASONE
  10. FERROUS GLUC [Concomitant]
  11. SERTRALINE [Concomitant]
     Active Substance: SERTRALINE HYDROCHLORIDE
  12. LANTUS [Concomitant]
     Active Substance: INSULIN GLARGINE
  13. EZETIMIBE. [Concomitant]
     Active Substance: EZETIMIBE
  14. LEVOTHYROXINE. [Concomitant]
     Active Substance: LEVOTHYROXINE
  15. ATENOLOL. [Concomitant]
     Active Substance: ATENOLOL
  16. OLMESARTAN MEDOXOMIL. [Concomitant]
     Active Substance: OLMESARTAN MEDOXOMIL
  17. DOXEPIN [Concomitant]
     Active Substance: DOXEPIN

REACTIONS (13)
  - Pain of skin [None]
  - Peripheral swelling [None]
  - Burning sensation [None]
  - Rash macular [None]
  - Systemic lupus erythematosus [None]
  - Blood glucose increased [None]
  - Back pain [None]
  - Acne [None]
  - Myalgia [None]
  - Alopecia [None]
  - Asthenia [None]
  - Contusion [None]
  - Crying [None]

NARRATIVE: CASE EVENT DATE: 20180618
